FAERS Safety Report 8847859 (Version 1)
Quarter: 2012Q4

REPORT INFORMATION
  Report Type: 
  Country: IT (occurrence: IT)
  Receive Date: 20121018
  Receipt Date: 20121018
  Transmission Date: 20130627
  Serious: Yes (Hospitalization)
  Sender: FDA-Public Use
  Company Number: PHHY2012IT091456

PATIENT
  Sex: Male

DRUGS (2)
  1. CARVEDILOL [Suspect]
  2. HYDROCHLOROTHIAZIDE [Suspect]

REACTIONS (1)
  - Syncope [Recovered/Resolved]
